FAERS Safety Report 24295445 (Version 1)
Quarter: 2024Q3

REPORT INFORMATION
  Report Type: Report from Study
  Country: US (occurrence: US)
  Receive Date: 20240908
  Receipt Date: 20240908
  Transmission Date: 20241016
  Serious: No
  Sender: ALEXION PHARMACEUTICALS
  Company Number: US-ALXN-202409USA000273US

PATIENT

DRUGS (1)
  1. STRENSIQ [Suspect]
     Active Substance: ASFOTASE ALFA
     Indication: Product used for unknown indication
     Dosage: UNK MILLIGRAM
     Route: 065

REACTIONS (10)
  - Dizziness [Unknown]
  - Paraesthesia oral [Unknown]
  - Paraesthesia [Unknown]
  - Pain [Unknown]
  - Bone pain [Unknown]
  - Arthralgia [Unknown]
  - Carbon dioxide decreased [Unknown]
  - Blood creatinine decreased [Unknown]
  - Injection site pruritus [Unknown]
  - Injection site rash [Unknown]

NARRATIVE: CASE EVENT DATE: 20240228
